FAERS Safety Report 5284318-9 (Version None)
Quarter: 2007Q1

REPORT INFORMATION
  Report Type: 
  Country: None (occurrence: None)
  Receive Date: 20070327
  Receipt Date: 20070319
  Transmission Date: 20070707
  Serious: Yes (Death)
  Sender: FDA-Public Use
  Company Number: 6027268

PATIENT
  Age: 77 Year
  Sex: Female

DRUGS (10)
  1. CARDENSIEL (TABLET) (BISOPROLOL FUMARATE) [Suspect]
     Indication: DRUG USE FOR UNKNOWN INDICATION
     Dosage: ORAL
     Route: 048
     Dates: start: 20060715
  2. BURINEX (TABLET) (BUMETANIDE) [Suspect]
     Indication: DRUG USE FOR UNKNOWN INDICATION
     Dosage: ORAL
     Route: 048
     Dates: start: 20061006
  3. TENSTATEN (CAPSULE) (CICLETANINE) [Suspect]
     Indication: DRUG USE FOR UNKNOWN INDICATION
     Dosage: ORAL
     Route: 048
     Dates: start: 20061006
  4. LERCANIDIPINE [Suspect]
     Indication: DRUG USE FOR UNKNOWN INDICATION
     Dosage: ORAL
     Route: 048
     Dates: start: 20061006
  5. THALIDOMIDE [Suspect]
     Indication: MYELOMA RECURRENCE
     Dosage: 100 MG (100 MG, 1 D), ORAL
     Route: 048
     Dates: start: 20060512
  6. MOPRAL (OMEPRAZOLE) [Suspect]
     Indication: DRUG USE FOR UNKNOWN INDICATION
  7. PRAVASTATIN [Suspect]
     Indication: DRUG USE FOR UNKNOWN INDICATION
  8. KARDEGIC (ACETYLSALICYLATE LYSINE [Suspect]
     Indication: DRUG USE FOR UNKNOWN INDICATION
  9. PERIDYS (DOMPERIDONE) [Suspect]
     Indication: DRUG USE FOR UNKNOWN INDICATION
  10. PREVISCAN (FLUINDIONE) [Suspect]
     Indication: DRUG USE FOR UNKNOWN INDICATION

REACTIONS (10)
  - CEREBRAL HAEMORRHAGE [None]
  - CEREBROVASCULAR ACCIDENT [None]
  - CYTOLYTIC HEPATITIS [None]
  - FALL [None]
  - GENERAL PHYSICAL HEALTH DETERIORATION [None]
  - INTERNATIONAL NORMALISED RATIO INCREASED [None]
  - MULTI-ORGAN DISORDER [None]
  - PETIT MAL EPILEPSY [None]
  - RENAL FAILURE ACUTE [None]
  - RHABDOMYOLYSIS [None]
